FAERS Safety Report 10224662 (Version 5)
Quarter: 2015Q1

REPORT INFORMATION
  Report Type: Spontaneous
  Country: US (occurrence: US)
  Receive Date: 20140609
  Receipt Date: 20150227
  Transmission Date: 20150720
  Serious: No
  Sender: FDA-Public Use
  Company Number: US-009507513-1406USA001931

PATIENT
  Sex: Male

DRUGS (3)
  1. FINASTERIDE. [Suspect]
     Active Substance: FINASTERIDE
     Route: 048
  2. PROPECIA [Suspect]
     Active Substance: FINASTERIDE
     Route: 048
  3. PROSCAR [Suspect]
     Active Substance: FINASTERIDE
     Indication: ALOPECIA
     Dosage: 5 MG, UNK
     Route: 048
     Dates: start: 200104, end: 200304

REACTIONS (13)
  - Drug administration error [Unknown]
  - Sexual dysfunction [Not Recovered/Not Resolved]
  - Off label use [Unknown]
  - Hypogonadism [Unknown]
  - Primary hypogonadism [Unknown]
  - Endocrine disorder [Unknown]
  - Asthenia [Unknown]
  - Erectile dysfunction [Not Recovered/Not Resolved]
  - Alopecia [Unknown]
  - Muscle disorder [Unknown]
  - Androgen deficiency [Unknown]
  - Circadian rhythm sleep disorder [Unknown]
  - Loss of libido [Unknown]

NARRATIVE: CASE EVENT DATE: 200104
